FAERS Safety Report 4286098-2 (Version None)
Quarter: 2004Q1

REPORT INFORMATION
  Report Type: 
  Country: None (occurrence: None)
  Receive Date: 20040120
  Receipt Date: 20030801
  Transmission Date: 20041129
  Serious: Yes (Hospitalization)
  Sender: FDA-Public Use
  Company Number: ENZ-ABE-126

PATIENT
  Age: 70 Year
  Sex: Female

DRUGS (1)
  1. ABELCET [Suspect]
     Indication: FUNGUS URINE TEST POSITIVE
     Dosage: 5 MG/KG IV
     Route: 042

REACTIONS (1)
  - HYPOKALAEMIA [None]
